FAERS Safety Report 15810201 (Version 1)
Quarter: 2019Q1

REPORT INFORMATION
  Report Type: Spontaneous
  Country: US (occurrence: US)
  Receive Date: 20190111
  Receipt Date: 20190111
  Transmission Date: 20190417
  Serious: Yes (Other)
  Sender: FDA-Public Use
  Company Number: US-ROCHE-2170616

PATIENT

DRUGS (3)
  1. HYALURONIDASE [Suspect]
     Active Substance: HYALURONIDASE
     Indication: MANTLE CELL LYMPHOMA
     Route: 065
  2. RITUXAN [Suspect]
     Active Substance: RITUXIMAB
     Indication: MANTLE CELL LYMPHOMA
     Dosage: ONGOING: NO
     Route: 065
  3. BENDAMUSTINE [Concomitant]
     Active Substance: BENDAMUSTINE
     Dosage: ONGOING: YES
     Route: 065

REACTIONS (8)
  - Skin exfoliation [Unknown]
  - Cellulitis [Unknown]
  - Asthenia [Unknown]
  - Erythema [Unknown]
  - Peripheral swelling [Unknown]
  - Chills [Unknown]
  - Fall [Unknown]
  - Pyrexia [Unknown]
